FAERS Safety Report 6403547-1 (Version None)
Quarter: 2009Q4

REPORT INFORMATION
  Report Type: 
  Country: None (occurrence: None)
  Receive Date: 20091016
  Receipt Date: 20091006
  Transmission Date: 20100525
  Serious: Yes (Death)
  Sender: FDA-Public Use
  Company Number: CA-AVENTIS-200916160EU

PATIENT

DRUGS (1)
  1. LOVENOX [Suspect]

REACTIONS (1)
  - PULMONARY EMBOLISM [None]
